FAERS Safety Report 7775215-5 (Version None)
Quarter: 2011Q3

REPORT INFORMATION
  Report Type: 
  Country: None (occurrence: None)
  Receive Date: 20110923
  Receipt Date: 20110914
  Transmission Date: 20111222
  Serious: Yes (Hospitalization, Other)
  Sender: FDA-Public Use
  Company Number: US-MERCK-1108USA01569

PATIENT
  Age: 55 Year
  Sex: Female

DRUGS (1)
  1. FOSAMAX [Suspect]
     Indication: OSTEOPOROSIS
     Route: 048
     Dates: end: 20080101

REACTIONS (21)
  - HYPERTENSION [None]
  - DEPRESSION [None]
  - FRACTURE NONUNION [None]
  - IMPAIRED HEALING [None]
  - FATIGUE [None]
  - OSTEOARTHRITIS [None]
  - SPONDYLITIS [None]
  - HYPERCHOLESTEROLAEMIA [None]
  - RHEUMATOID ARTHRITIS [None]
  - ASTHMA [None]
  - FEMUR FRACTURE [None]
  - BACK DISORDER [None]
  - ANKLE FRACTURE [None]
  - PANIC ATTACK [None]
  - FOOT FRACTURE [None]
  - ARTHRITIS [None]
  - FALL [None]
  - DRUG HYPERSENSITIVITY [None]
  - ANXIETY [None]
  - NEUROPATHY PERIPHERAL [None]
  - FIBROMYALGIA [None]
